FAERS Safety Report 9165117 (Version 2)
Quarter: 2013Q4

REPORT INFORMATION
  Report Type: Spontaneous
  Country: GB (occurrence: GB)
  Receive Date: 20130315
  Receipt Date: 20131028
  Transmission Date: 20140711
  Serious: Yes (Other)
  Sender: FDA-Public Use
  Company Number: GB-SHIRE-ALL1-2013-01298

PATIENT
  Age: 51 Year
  Sex: Female
  Weight: 84.5 kg

DRUGS (1)
  1. MEZAVANT XL [Suspect]
     Indication: COLITIS ULCERATIVE
     Dosage: 4800 MG, UNKNOWN ( FOUR 1200MG TABLET, FRQUENCY UNKNOWN)
     Route: 048
     Dates: start: 20121121, end: 20121204

REACTIONS (2)
  - Suicidal ideation [Not Recovered/Not Resolved]
  - Tinnitus [Not Recovered/Not Resolved]
